FAERS Safety Report 24131558 (Version 2)
Quarter: 2025Q4

REPORT INFORMATION
  Report Type: Report from Study
  Country: US (occurrence: US)
  Receive Date: 20240724
  Receipt Date: 20251105
  Transmission Date: 20260118
  Serious: Yes (Death, Hospitalization)
  Sender: SANOFI AVENTIS
  Company Number: US-SA-SAC20211230001159

PATIENT
  Age: 78 Year
  Sex: Female
  Weight: 158 kg

DRUGS (20)
  1. ISATUXIMAB-IRFC [Suspect]
     Active Substance: ISATUXIMAB-IRFC
     Indication: Plasma cell myeloma refractory
     Dosage: 753 MG, QW
     Dates: start: 20210916, end: 20211013
  2. ISATUXIMAB-IRFC [Suspect]
     Active Substance: ISATUXIMAB-IRFC
     Dosage: 753 MG, QW
     Dates: start: 20210923, end: 20210923
  3. ISATUXIMAB-IRFC [Suspect]
     Active Substance: ISATUXIMAB-IRFC
     Dosage: 735 MG, QW
     Dates: start: 20210923, end: 20211028
  4. ISATUXIMAB-IRFC [Suspect]
     Active Substance: ISATUXIMAB-IRFC
     Dosage: 746 MG, BIW
     Dates: start: 20211216, end: 20211216
  5. ISATUXIMAB-IRFC [Suspect]
     Active Substance: ISATUXIMAB-IRFC
     Dosage: 735 MG, BIW
     Dates: start: 20211014, end: 20211110
  6. ISATUXIMAB-IRFC [Suspect]
     Active Substance: ISATUXIMAB-IRFC
     Dosage: 735 MG, BIW
     Dates: start: 20211111, end: 20211124
  7. ISATUXIMAB-IRFC [Suspect]
     Active Substance: ISATUXIMAB-IRFC
     Dosage: 735 MG, BIW
     Dates: start: 20211216, end: 20211216
  8. CARFILZOMIB [Suspect]
     Active Substance: CARFILZOMIB
     Indication: Plasma cell myeloma refractory
     Dosage: 37 MG, QW
     Dates: start: 20210916, end: 20211118
  9. CARFILZOMIB [Suspect]
     Active Substance: CARFILZOMIB
     Dosage: 129 MG, QW
     Dates: start: 20210916, end: 20211007
  10. CARFILZOMIB [Suspect]
     Active Substance: CARFILZOMIB
     Dosage: 129 MG, QW
     Dates: start: 20211014, end: 20211104
  11. CARFILZOMIB [Suspect]
     Active Substance: CARFILZOMIB
     Dosage: 129 MG, QW
     Dates: start: 20211111, end: 20211201
  12. CARFILZOMIB [Suspect]
     Active Substance: CARFILZOMIB
     Dosage: 129 MG, QW
     Dates: start: 20211216, end: 20211216
  13. DEXAMETHASONE [Suspect]
     Active Substance: DEXAMETHASONE
     Indication: Plasma cell myeloma refractory
     Dosage: 20 MG, QW
     Dates: start: 20210916, end: 20211007
  14. DEXAMETHASONE [Suspect]
     Active Substance: DEXAMETHASONE
     Dosage: 20 MG, QW
     Dates: start: 20211014, end: 20211103
  15. DEXAMETHASONE [Suspect]
     Active Substance: DEXAMETHASONE
     Dosage: 20 MG, QW
     Dates: start: 20211111, end: 20211202
  16. DEXAMETHASONE [Suspect]
     Active Substance: DEXAMETHASONE
     Dosage: 20 MG, QW
     Dates: start: 20211216, end: 20211216
  17. HYDROCHLOROTHIAZIDE [Concomitant]
     Active Substance: HYDROCHLOROTHIAZIDE
     Indication: Essential hypertension
     Dosage: 1 UNK, QD
     Route: 048
     Dates: start: 20210313, end: 20211208
  18. CARVEDILOL [Concomitant]
     Active Substance: CARVEDILOL
     Indication: Essential hypertension
     Dosage: 1 UNK, QD
     Route: 048
     Dates: start: 20200313
  19. AMLODIPINE [Concomitant]
     Active Substance: AMLODIPINE BESYLATE
     Indication: Essential hypertension
     Dosage: 1 UNK, QD
     Route: 048
     Dates: start: 20200313, end: 20211206
  20. ELIQUIS [Concomitant]
     Active Substance: APIXABAN
     Indication: Embolism venous
     Dosage: UNK UNK, BID
     Dates: start: 20210809, end: 20211218

REACTIONS (1)
  - Pneumonia [Fatal]

NARRATIVE: CASE EVENT DATE: 20211221
